FAERS Safety Report 12115710 (Version 1)
Quarter: 2016Q1

REPORT INFORMATION
  Report Type: Spontaneous
  Country: US (occurrence: US)
  Receive Date: 20160225
  Receipt Date: 20160225
  Transmission Date: 20160526
  Serious: Yes (Other)
  Sender: FDA-Public Use
  Company Number: US-LPDUSPRD-20160159

PATIENT
  Age: 22 Year
  Sex: Female

DRUGS (4)
  1. MORPHINE SULFATE. [Suspect]
     Active Substance: MORPHINE SULFATE
     Dosage: PATIENT CONTROLLED ANALGESIA
     Route: 042
  2. LIDOCAINE HCL [Suspect]
     Active Substance: LIDOCAINE HYDROCHLORIDE
     Dosage: TOTAL DOSE: 600 MG/ 50 MG
     Route: 008
  3. EPINEPHRINE. [Suspect]
     Active Substance: EPINEPHRINE
     Dosage: DOSE NOT PROVIDED
     Route: 008
  4. OXYTOCIN. [Concomitant]
     Active Substance: OXYTOCIN
     Dosage: DOSE NOT PROVIDED
     Route: 042

REACTIONS (2)
  - Coma [Unknown]
  - Sensory loss [Unknown]
